FAERS Safety Report 24592501 (Version 1)
Quarter: 2024Q4

REPORT INFORMATION
  Report Type: Spontaneous
  Country: GB (occurrence: GB)
  Receive Date: 20241108
  Receipt Date: 20241108
  Transmission Date: 20250114
  Serious: Yes (Other)
  Sender: AUROBINDO
  Company Number: GB-MHRA-MED-202410271424243870-QBGZP

PATIENT
  Sex: Female

DRUGS (1)
  1. METRONIDAZOLE [Suspect]
     Active Substance: METRONIDAZOLE
     Indication: Abscess
     Dosage: UNK
     Route: 065
     Dates: start: 20241026

REACTIONS (1)
  - Psychomotor hyperactivity [Recovering/Resolving]

NARRATIVE: CASE EVENT DATE: 20241026
